FAERS Safety Report 17493162 (Version 1)
Quarter: 2020Q1

REPORT INFORMATION
  Report Type: Spontaneous
  Country: FR (occurrence: FR)
  Receive Date: 20200304
  Receipt Date: 20200304
  Transmission Date: 20200409
  Serious: Yes (Other)
  Sender: FDA-Public Use
  Company Number: FR-TEVA-2020-FR-1194347

PATIENT
  Age: 47 Year
  Sex: Female
  Weight: 48 kg

DRUGS (11)
  1. MORPHINE [Suspect]
     Active Substance: MORPHINE
     Indication: PREMEDICATION
     Route: 058
     Dates: start: 20191107, end: 20200103
  2. METHYLPREDNISOLONE MYLAN [Suspect]
     Active Substance: METHYLPREDNISOLONE
     Indication: PRODUCT USED FOR UNKNOWN INDICATION
     Dosage: 60 MG
     Route: 042
     Dates: start: 20191107, end: 20200103
  3. LEELOO [Concomitant]
     Active Substance: ETHINYL ESTRADIOL\LEVONORGESTREL
  4. DOLIPRANE [Concomitant]
     Active Substance: ACETAMINOPHEN
  5. INEXIUM [Concomitant]
     Active Substance: ESOMEPRAZOLE
  6. TRAMADOL BASE [Concomitant]
     Active Substance: TRAMADOL
  7. GEMCITABINE. [Suspect]
     Active Substance: GEMCITABINE
     Indication: CHOLANGIOCARCINOMA
     Dosage: LIVER ARTERIAL. 1560 MG
     Route: 013
     Dates: start: 20191107, end: 20200103
  8. ALOXI [Suspect]
     Active Substance: PALONOSETRON HYDROCHLORIDE
     Indication: PREMEDICATION
     Route: 048
     Dates: start: 20191107, end: 20200103
  9. OXALIPLATINE [Suspect]
     Active Substance: OXALIPLATIN
     Indication: CHOLANGIOCARCINOMA
     Dosage: LIVER ARTERIAL. 155 MG
     Route: 013
     Dates: start: 20191107, end: 20200103
  10. EMEND [Suspect]
     Active Substance: APREPITANT
     Indication: PREMEDICATION
     Route: 048
     Dates: start: 20191107, end: 20200103
  11. KARDEGIC [Concomitant]
     Active Substance: ASPIRIN DL-LYSINE

REACTIONS (1)
  - Cholestasis [Recovering/Resolving]

NARRATIVE: CASE EVENT DATE: 20200116
